FAERS Safety Report 15012899 (Version 5)
Quarter: 2018Q4

REPORT INFORMATION
  Report Type: Report from Study
  Country: US (occurrence: US)
  Receive Date: 20180614
  Receipt Date: 20181005
  Transmission Date: 20190204
  Serious: Yes (Other)
  Sender: FDA-Public Use
  Company Number: US-PFIZER INC-2018163324

PATIENT
  Age: 64 Year
  Sex: Female

DRUGS (4)
  1. IBRANCE [Suspect]
     Active Substance: PALBOCICLIB
     Dosage: 125 MG, CYCLIC (DAILY, 21 DAYS AND OFF 7 DAYS)
     Route: 048
     Dates: start: 20180518
  2. IBRANCE [Suspect]
     Active Substance: PALBOCICLIB
     Dosage: 100 MG, CYCLIC(DAILY/100 MG DAILY FOR 5 DAYS ON AND 2 DAYS OFF )
     Route: 048
     Dates: start: 20180815
  3. IBRANCE [Suspect]
     Active Substance: PALBOCICLIB
     Dosage: 125 MG, CYCLIC (DAILY, 3 WEEKS ON/1 WEEK OFF/ DAILY FOR 21 DAYS AND OFF 7 DAYS)
     Route: 048
     Dates: start: 20180410, end: 20180508
  4. AROMASIN [Suspect]
     Active Substance: EXEMESTANE
     Dosage: UNK, DAILY

REACTIONS (36)
  - Neuropathy peripheral [Not Recovered/Not Resolved]
  - Rhinorrhoea [Unknown]
  - Arthralgia [Unknown]
  - Hypersensitivity [Unknown]
  - Bone marrow failure [Unknown]
  - Pain in extremity [Unknown]
  - Back pain [Unknown]
  - Eye discharge [Unknown]
  - Muscle spasms [Recovering/Resolving]
  - Hot flush [Unknown]
  - Glycosylated haemoglobin increased [Unknown]
  - Lacrimation increased [Unknown]
  - Dry skin [Not Recovered/Not Resolved]
  - Ocular hyperaemia [Unknown]
  - Headache [Unknown]
  - Hyperhidrosis [Unknown]
  - Nail disorder [Unknown]
  - Stomatitis [Unknown]
  - Nasopharyngitis [Unknown]
  - Feeling hot [Unknown]
  - Condition aggravated [Not Recovered/Not Resolved]
  - Pain [Unknown]
  - Initial insomnia [Unknown]
  - Tooth infection [Unknown]
  - Dry eye [Unknown]
  - Decreased appetite [Recovering/Resolving]
  - Fatigue [Not Recovered/Not Resolved]
  - Axillary pain [Unknown]
  - Limb discomfort [Unknown]
  - Condition aggravated [Unknown]
  - Eye infection [Unknown]
  - Product dose omission [Unknown]
  - Pruritus [Unknown]
  - Oral infection [Unknown]
  - Flatulence [Unknown]
  - Throat irritation [Unknown]

NARRATIVE: CASE EVENT DATE: 2018
